FAERS Safety Report 10683304 (Version 1)
Quarter: 2014Q4

REPORT INFORMATION
  Report Type: Spontaneous
  Country: US (occurrence: None)
  Receive Date: 20141229
  Receipt Date: 20141229
  Transmission Date: 20150529
  Serious: Yes (Other)
  Sender: FDA-Public Use
  Company Number: None

PATIENT
  Age: 70 Year
  Sex: Male
  Weight: 90.72 kg

DRUGS (2)
  1. NORDITROPIN [Suspect]
     Active Substance: SOMATROPIN
     Indication: HYPOPITUITARISM
     Dosage: .20 MG ONCE DAILY GIVEN INTO/UNDER THE SKIN
     Route: 058
     Dates: start: 20141001, end: 20141115
  2. NORDITROPIN [Suspect]
     Active Substance: SOMATROPIN
     Indication: PITUITARY TUMOUR BENIGN
     Dosage: .20 MG ONCE DAILY GIVEN INTO/UNDER THE SKIN
     Route: 058
     Dates: start: 20141001, end: 20141115

REACTIONS (3)
  - Abdominal pain upper [None]
  - Pancreatitis [None]
  - Product substitution issue [None]

NARRATIVE: CASE EVENT DATE: 20141001
